FAERS Safety Report 4300632-5 (Version None)
Quarter: 2004Q1

REPORT INFORMATION
  Report Type: 
  Country: None (occurrence: None)
  Receive Date: 20040211
  Receipt Date: 20040128
  Transmission Date: 20041129
  Serious: Yes (Other)
  Sender: FDA-Public Use
  Company Number: 200410019BBE

PATIENT
  Age: 3 Year

DRUGS (1)
  1. BAYRAB [Suspect]
     Dosage: ONCE, INTRAMUSCULAR
     Route: 030
     Dates: start: 20011022

REACTIONS (2)
  - CONVULSION [None]
  - DRUG INEFFECTIVE [None]
